FAERS Safety Report 13076252 (Version 1)
Quarter: 2016Q4

REPORT INFORMATION
  Report Type: Spontaneous
  Country: GB (occurrence: GB)
  Receive Date: 20161230
  Receipt Date: 20161230
  Transmission Date: 20170207
  Serious: Yes (Life-Threatening)
  Sender: FDA-Public Use
  Company Number: GB-GUERBET LLC-1061415

PATIENT
  Age: 45 Year
  Sex: Female
  Weight: 76.2 kg

DRUGS (1)
  1. DOTAREM [Suspect]
     Active Substance: GADOTERATE MEGLUMINE
     Indication: NUCLEAR MAGNETIC RESONANCE IMAGING
     Route: 042
     Dates: start: 20161214, end: 20161214

REACTIONS (4)
  - Unresponsive to stimuli [Recovered/Resolved]
  - Respiratory arrest [Recovering/Resolving]
  - Malaise [Recovering/Resolving]
  - Contrast media reaction [Recovering/Resolving]

NARRATIVE: CASE EVENT DATE: 20161214
